FAERS Safety Report 10070526 (Version 1)
Quarter: 2014Q2

REPORT INFORMATION
  Report Type: Spontaneous
  Country: US (occurrence: US)
  Receive Date: 20140410
  Receipt Date: 20140410
  Transmission Date: 20141212
  Serious: Yes (Hospitalization)
  Sender: FDA-Public Use
  Company Number: US-BEH-2014041640

PATIENT
  Age: 16 Month
  Sex: 0

DRUGS (1)
  1. FIBROGAMMIN [Suspect]

REACTIONS (1)
  - Haemorrhage intracranial [Unknown]
